FAERS Safety Report 23484714 (Version 3)
Quarter: 2024Q1

REPORT INFORMATION
  Report Type: Report from Study
  Country: US (occurrence: US)
  Receive Date: 20240206
  Receipt Date: 20240221
  Transmission Date: 20240410
  Serious: Yes (Other)
  Sender: FDA-Public Use
  Company Number: US-UCBSA-2024004974

PATIENT
  Age: 78 Year
  Sex: Female

DRUGS (1)
  1. BIMEKIZUMAB [Suspect]
     Active Substance: BIMEKIZUMAB
     Indication: Psoriasis
     Dosage: 320 MILLIGRAM, EV 4 WEEKS
     Route: 058
     Dates: start: 20240118, end: 20240201

REACTIONS (7)
  - Skin mass [Not Recovered/Not Resolved]
  - Back pain [Recovered/Resolved]
  - Sneezing [Not Recovered/Not Resolved]
  - Fatigue [Recovered/Resolved]
  - Throat tightness [Not Recovered/Not Resolved]
  - Nasal congestion [Recovered/Resolved]
  - Adverse drug reaction [Recovered/Resolved]

NARRATIVE: CASE EVENT DATE: 20240101
